FAERS Safety Report 8462482-8 (Version None)
Quarter: 2012Q2

REPORT INFORMATION
  Report Type: 
  Country: None (occurrence: None)
  Receive Date: 20120625
  Receipt Date: 20120618
  Transmission Date: 20120825
  Serious: Yes (Death, Hospitalization, Other)
  Sender: FDA-Public Use
  Company Number: US-ELI_LILLY_AND_COMPANY-US201204003338

PATIENT
  Sex: Female

DRUGS (3)
  1. HUMULIN R [Suspect]
     Dosage: UNK
     Dates: start: 20070126
  2. LANTUS [Concomitant]
     Indication: DIABETES MELLITUS
  3. NOVOLOG [Concomitant]
     Indication: DIABETES MELLITUS

REACTIONS (6)
  - HYPERSENSITIVITY [None]
  - WRONG DRUG ADMINISTERED [None]
  - UROSEPSIS [None]
  - BRAIN INJURY [None]
  - CONVULSION [None]
  - BLOOD GLUCOSE DECREASED [None]
